FAERS Safety Report 9112726 (Version 1)
Quarter: 2013Q1

REPORT INFORMATION
  Report Type: Not Available
  Country: ES (occurrence: ES)
  Receive Date: 20130211
  Receipt Date: 20130211
  Transmission Date: 20140127
  Serious: Yes (Hospitalization)
  Sender: FDA-Public Use
  Company Number: ES-ASTELLAS-2013US001292

PATIENT
  Age: 27 Year
  Sex: Male

DRUGS (6)
  1. AMBISOME [Suspect]
     Indication: VISCERAL LEISHMANIASIS
     Dosage: UNK
     Route: 042
     Dates: start: 20120618, end: 20120623
  2. PENTAMICINA [Suspect]
     Indication: VISCERAL LEISHMANIASIS
     Dosage: UNK
     Route: 042
     Dates: start: 20120608, end: 20120619
  3. COTRIMOXAZOLE [Suspect]
     Indication: PNEUMOCYSTIS JIROVECII INFECTION
     Dosage: UNK
     Route: 048
     Dates: start: 20120618, end: 20120623
  4. PIRIMETAMINA [Concomitant]
     Indication: PRODUCT USED FOR UNKNOWN INDICATION
     Dosage: UNK
     Route: 065
     Dates: start: 20120608, end: 20120619
  5. CEFTRIAXONA [Concomitant]
     Indication: PRODUCT USED FOR UNKNOWN INDICATION
     Dosage: UNK
     Route: 065
     Dates: start: 20120607, end: 20120615
  6. FLUCONAZOL [Concomitant]
     Indication: PRODUCT USED FOR UNKNOWN INDICATION
     Dosage: UNK
     Route: 065
     Dates: start: 20120608, end: 20120619

REACTIONS (1)
  - Renal tubular acidosis [Unknown]
